FAERS Safety Report 8451048-1 (Version None)
Quarter: 2012Q2

REPORT INFORMATION
  Report Type: 
  Country: None (occurrence: None)
  Receive Date: 20120620
  Receipt Date: 20120619
  Transmission Date: 20120825
  Serious: Yes (Hospitalization)
  Sender: FDA-Public Use
  Company Number: MX-ABBOTT-12P-107-0924224-00

PATIENT
  Sex: Male
  Weight: 66 kg

DRUGS (4)
  1. PROFENID RETARD [Concomitant]
     Indication: ANKYLOSING SPONDYLITIS
     Route: 048
     Dates: start: 20110301, end: 20120301
  2. HUMIRA [Suspect]
     Indication: ANKYLOSING SPONDYLITIS
     Route: 058
     Dates: start: 20110301, end: 20120301
  3. VITAMIN B-12 [Concomitant]
     Indication: VITAMIN SUPPLEMENTATION
     Route: 048
     Dates: start: 20050101, end: 20120301
  4. OCTRIM [Concomitant]
     Indication: ANKYLOSING SPONDYLITIS
     Route: 048
     Dates: start: 20110301, end: 20120301

REACTIONS (8)
  - ABDOMINAL PAIN UPPER [None]
  - WEIGHT DECREASED [None]
  - SMALL INTESTINE ULCER [None]
  - RECTAL HAEMORRHAGE [None]
  - BLOOD GLUCOSE INCREASED [None]
  - CROHN'S DISEASE [None]
  - TUBERCULIN TEST POSITIVE [None]
  - HYPERTENSION [None]
